FAERS Safety Report 11800503 (Version 3)
Quarter: 2015Q4

REPORT INFORMATION
  Report Type: Report from Study
  Country: CO (occurrence: CO)
  Receive Date: 20151203
  Receipt Date: 20151217
  Transmission Date: 20160305
  Serious: Yes (Other)
  Sender: FDA-Public Use
  Company Number: CO-ABBVIE-15K-036-1511790-00

PATIENT
  Age: 47 Year
  Sex: Male
  Weight: 59 kg

DRUGS (1)
  1. HUMIRA [Suspect]
     Active Substance: ADALIMUMAB
     Indication: CROHN^S DISEASE
     Route: 058
     Dates: start: 20141010, end: 20151028

REACTIONS (7)
  - Colitis ulcerative [Unknown]
  - Ileal stenosis [Unknown]
  - Abdominal distension [Not Recovered/Not Resolved]
  - Flatulence [Recovering/Resolving]
  - Frequent bowel movements [Recovering/Resolving]
  - Oedema peripheral [Not Recovered/Not Resolved]
  - Abdominal adhesions [Unknown]

NARRATIVE: CASE EVENT DATE: 20150610
